FAERS Safety Report 21979520 (Version 1)
Quarter: 2023Q1

REPORT INFORMATION
  Report Type: Spontaneous
  Country: US (occurrence: None)
  Receive Date: 20230208
  Receipt Date: 20230208
  Transmission Date: 20230417
  Serious: Yes (Death)
  Sender: FDA-Public Use
  Company Number: None

PATIENT
  Age: 74 Year
  Sex: Female

DRUGS (25)
  1. PRALUENT [Suspect]
     Active Substance: ALIROCUMAB
     Indication: Product used for unknown indication
     Dosage: INJECT 1ML UNDER THE SKIN Q 14 DAYS
     Route: 058
     Dates: start: 20220131
  2. CLOPIDOGREL [Concomitant]
     Active Substance: CLOPIDOGREL BISULFATE
  3. WARFARIN [Concomitant]
     Active Substance: WARFARIN
  4. ACETAMINOPHEN [Concomitant]
     Active Substance: ACETAMINOPHEN
  5. ALBUTEROL [Concomitant]
     Active Substance: ALBUTEROL
  6. ALLOPURINOL [Concomitant]
     Active Substance: ALLOPURINOL
  7. AMLODIPINE [Concomitant]
     Active Substance: AMLODIPINE BESYLATE
  8. ASPIRIN [Concomitant]
     Active Substance: ASPIRIN
  9. ATORVASTATIN [Concomitant]
     Active Substance: ATORVASTATIN
  10. CARVEDILOL [Concomitant]
     Active Substance: CARVEDILOL
  11. CLONIDINE [Concomitant]
     Active Substance: CLONIDINE
  12. DOCUSATE [Concomitant]
     Active Substance: DOCUSATE
  13. FLUTICASONE [Concomitant]
     Active Substance: FLUTICASONE
  14. FUROSEMIDE [Concomitant]
     Active Substance: FUROSEMIDE
  15. HYDRALAZINE [Concomitant]
     Active Substance: HYDRALAZINE HYDROCHLORIDE
  16. ISOSORBIDE [Concomitant]
     Active Substance: ISOSORBIDE
  17. LORATADINE [Concomitant]
     Active Substance: LORATADINE
  18. MONTELUKAST [Concomitant]
     Active Substance: MONTELUKAST SODIUM
  19. NITROGLYCERIN [Concomitant]
     Active Substance: NITROGLYCERIN
  20. NORCO [Concomitant]
     Active Substance: ACETAMINOPHEN\HYDROCODONE BITARTRATE
  21. NOVOLIN NOS [Concomitant]
     Active Substance: INSULIN HUMAN
  22. OZEMPIC [Concomitant]
     Active Substance: SEMAGLUTIDE
  23. PRIMIDONE [Concomitant]
     Active Substance: PRIMIDONE
  24. TIZANIDINE [Concomitant]
     Active Substance: TIZANIDINE
  25. TYLENOL [Concomitant]
     Active Substance: ACETAMINOPHEN

REACTIONS (1)
  - Death [None]
